FAERS Safety Report 5841319-7 (Version None)
Quarter: 2008Q3

REPORT INFORMATION
  Report Type: 
  Country: None (occurrence: None)
  Receive Date: 20080731
  Receipt Date: 20080624
  Transmission Date: 20090109
  Serious: No
  Sender: FDA-Public Use
  Company Number: US200805002594

PATIENT
  Sex: Male

DRUGS (3)
  1. BYETTA [Suspect]
     Dosage: 5 NG, SUBCUTANEOUS
     Route: 058
     Dates: start: 20080401
  2. GLYBURIDE [Concomitant]
  3. METFORMIN HCL [Concomitant]

REACTIONS (4)
  - BLOOD GLUCOSE DECREASED [None]
  - BLOOD GLUCOSE INCREASED [None]
  - DECREASED APPETITE [None]
  - TOOTH INFECTION [None]
